FAERS Safety Report 18711530 (Version 1)
Quarter: 2021Q1

REPORT INFORMATION
  Report Type: Spontaneous
  Country: US (occurrence: US)
  Receive Date: 20210106
  Receipt Date: 20210106
  Transmission Date: 20210419
  Serious: No
  Sender: FDA-Public Use
  Company Number: None

PATIENT
  Age: 74 Year
  Sex: Female
  Weight: 54.45 kg

DRUGS (12)
  1. SYNTHROID [Concomitant]
     Active Substance: LEVOTHYROXINE SODIUM
  2. PEPCID 40MG [Concomitant]
  3. IBRANCE [Suspect]
     Active Substance: PALBOCICLIB
     Indication: BREAST CANCER
     Route: 048
     Dates: start: 20200521
  4. METFORMIN 500MG [Concomitant]
     Active Substance: METFORMIN HYDROCHLORIDE
  5. OMEGA 3 500 [Concomitant]
  6. SYMBICORT 160?4.5MCG/ACT [Concomitant]
  7. LASIX 20MG [Concomitant]
  8. CARVEDILOL 25MG [Concomitant]
     Active Substance: CARVEDILOL
  9. VITAMIN B12 1000MCG [Concomitant]
  10. JANUVIA [Concomitant]
     Active Substance: SITAGLIPTIN PHOSPHATE
  11. RALOXIFENE 60MG [Concomitant]
     Active Substance: RALOXIFENE
  12. CLONIDINE 0.1MG [Concomitant]
     Active Substance: CLONIDINE

REACTIONS (2)
  - Diarrhoea [None]
  - Asthenia [None]

NARRATIVE: CASE EVENT DATE: 20210106
